FAERS Safety Report 25833048 (Version 1)
Quarter: 2025Q3

REPORT INFORMATION
  Report Type: Spontaneous
  Country: IN (occurrence: IN)
  Receive Date: 20250922
  Receipt Date: 20250922
  Transmission Date: 20251021
  Serious: Yes (Other)
  Sender: PFIZER
  Company Number: IN-PFIZER INC-2019504268

PATIENT
  Age: 64 Year
  Sex: Male

DRUGS (16)
  1. SUTENT [Suspect]
     Active Substance: SUNITINIB MALATE
     Indication: Metastatic renal cell carcinoma
     Dosage: 50 MG, 1X/DAY
     Route: 048
     Dates: start: 20111222
  2. SUTENT [Suspect]
     Active Substance: SUNITINIB MALATE
     Dosage: 50 MG, 1X/DAY
     Route: 048
     Dates: start: 20120211
  3. SUTENT [Suspect]
     Active Substance: SUNITINIB MALATE
     Route: 048
     Dates: start: 2014
  4. SUTENT [Suspect]
     Active Substance: SUNITINIB MALATE
     Route: 048
  5. SUTENT [Suspect]
     Active Substance: SUNITINIB MALATE
     Route: 048
  6. SUTENT [Suspect]
     Active Substance: SUNITINIB MALATE
     Dosage: 1 DF, DAILY
     Route: 048
  7. SUTENT [Suspect]
     Active Substance: SUNITINIB MALATE
     Route: 048
  8. SUTENT [Suspect]
     Active Substance: SUNITINIB MALATE
     Route: 048
     Dates: start: 202010
  9. SUTENT [Suspect]
     Active Substance: SUNITINIB MALATE
     Route: 048
  10. SUTENT [Suspect]
     Active Substance: SUNITINIB MALATE
     Route: 048
  11. SUTENT [Suspect]
     Active Substance: SUNITINIB MALATE
     Route: 048
  12. SUTENT [Suspect]
     Active Substance: SUNITINIB MALATE
     Route: 048
  13. SUTENT [Suspect]
     Active Substance: SUNITINIB MALATE
     Route: 048
  14. SUTENT [Suspect]
     Active Substance: SUNITINIB MALATE
     Route: 048
  15. SUTENT [Suspect]
     Active Substance: SUNITINIB MALATE
     Route: 048
  16. VALACYCLOVIR HYDROCHLORIDE [Concomitant]
     Active Substance: VALACYCLOVIR HYDROCHLORIDE

REACTIONS (24)
  - Deep vein thrombosis [Unknown]
  - Decreased immune responsiveness [Unknown]
  - Skin mass [Unknown]
  - Malaise [Unknown]
  - Pulmonary mass [Unknown]
  - Penile erythema [Unknown]
  - Pruritus genital [Unknown]
  - Blood urea increased [Unknown]
  - Rash vesicular [Unknown]
  - Blood glucose increased [Unknown]
  - Balanoposthitis [Unknown]
  - Genital lesion [Unknown]
  - Nephropathy [Unknown]
  - Inflammation [Unknown]
  - Pruritus [Unknown]
  - Erythema [Unknown]
  - Blood creatinine increased [Unknown]
  - Chest pain [Unknown]
  - Herpes virus infection [Unknown]
  - Asthenia [Unknown]
  - Dyspnoea [Unknown]
  - Fatigue [Unknown]
  - Off label use [Unknown]
  - Product use issue [Unknown]

NARRATIVE: CASE EVENT DATE: 20230416
